FAERS Safety Report 5011425-8 (Version None)
Quarter: 2006Q2

REPORT INFORMATION
  Report Type: 
  Country: None (occurrence: None)
  Receive Date: 20060524
  Receipt Date: 20060509
  Transmission Date: 20061013
  Serious: Yes (Disabling, Other)
  Sender: FDA-Public Use
  Company Number: LTI2006A00070

PATIENT
  Age: 56 Year
  Sex: Female

DRUGS (6)
  1. ACTOS [Suspect]
     Indication: DIABETES MELLITUS NON-INSULIN-DEPENDENT
     Dosage: 30 MG (30 MG, 1 IN 1) ORAL
     Route: 048
     Dates: start: 20050101, end: 20050206
  2. REPAGLINIDE [Concomitant]
  3. GLUCOPHAGE [Concomitant]
  4. CAPTOPRIL [Concomitant]
  5. CELECTOL [Concomitant]
  6. COAPROVEL (HYDROCHLOROTHIAZIDE, IRBESARTAN) [Concomitant]

REACTIONS (6)
  - ANAEMIA [None]
  - BLOOD PRESSURE INCREASED [None]
  - CONDITION AGGRAVATED [None]
  - MACULAR OEDEMA [None]
  - VISUAL ACUITY REDUCED [None]
  - WEIGHT INCREASED [None]
